FAERS Safety Report 7747684-8 (Version None)
Quarter: 2011Q3

REPORT INFORMATION
  Report Type: 
  Country: None (occurrence: None)
  Receive Date: 20110913
  Receipt Date: 20110908
  Transmission Date: 20111222
  Serious: Yes (Hospitalization, Other)
  Sender: FDA-Public Use
  Company Number: US-VERTEX PHARMACEUTICALS INC.-AE-2011-001368

PATIENT
  Sex: Female

DRUGS (3)
  1. INCIVEK [Suspect]
     Indication: HEPATITIS C
     Dates: start: 20110101, end: 20110101
  2. INTERFERON [Concomitant]
     Indication: HEPATITIS C
     Dates: end: 20110101
  3. RIBAVIRIN [Concomitant]
     Indication: HEPATITIS C
     Dates: end: 20110101

REACTIONS (4)
  - HAEMOGLOBIN DECREASED [None]
  - PNEUMONIA [None]
  - ABDOMINAL PAIN [None]
  - FATIGUE [None]
